FAERS Safety Report 6100794-3 (Version None)
Quarter: 2009Q1

REPORT INFORMATION
  Report Type: 
  Country: None (occurrence: None)
  Receive Date: 20090303
  Receipt Date: 20090223
  Transmission Date: 20090719
  Serious: Yes (Other)
  Sender: FDA-Public Use
  Company Number: US-JNJCH-2009005331

PATIENT
  Sex: Female

DRUGS (1)
  1. SUDAFED PE COLD + COUGH CAPLETS [Suspect]
     Indication: DRUG USE FOR UNKNOWN INDICATION
     Dosage: TEXT:8 CAPLETS UNSPECIFIED
     Route: 048

REACTIONS (1)
  - BLOOD URINE PRESENT [None]
